FAERS Safety Report 20328863 (Version 1)
Quarter: 2022Q1

REPORT INFORMATION
  Report Type: Spontaneous
  Country: IT (occurrence: None)
  Receive Date: 20220112
  Receipt Date: 20220112
  Transmission Date: 20220423
  Serious: Yes (Other)
  Sender: FDA-Public Use
  Company Number: IT-Merck Healthcare KGaA-9267130

PATIENT
  Age: 70 Year
  Sex: Female

DRUGS (1)
  1. EUTHYROX [Suspect]
     Active Substance: LEVOTHYROXINE SODIUM
     Indication: Product used for unknown indication
     Route: 048
     Dates: start: 20210821

REACTIONS (5)
  - Foreign body in throat [Unknown]
  - Throat irritation [Unknown]
  - Mouth ulceration [Unknown]
  - Aphthous ulcer [Unknown]
  - Headache [Unknown]

NARRATIVE: CASE EVENT DATE: 20210101
